FAERS Safety Report 11189595 (Version 1)
Quarter: 2015Q2

REPORT INFORMATION
  Report Type: Spontaneous
  Country: CN (occurrence: None)
  Receive Date: 20150611
  Receipt Date: 20150611
  Transmission Date: 20150821
  Serious: Yes (Hospitalization, Other)
  Sender: FDA-Public Use
  Company Number: 2015-056

PATIENT
  Age: 64 Year
  Sex: Female

DRUGS (2)
  1. LEVOFLOXACIN (NO PREF. NAME) 500 MG [Suspect]
     Active Substance: LEVOFLOXACIN
     Indication: PYREXIA
     Dosage: 500 MG/DAY,
  2. LEVOFLOXACIN (NO PREF. NAME) 500 MG [Suspect]
     Active Substance: LEVOFLOXACIN
     Indication: COUGH
     Dosage: 500 MG/DAY,

REACTIONS (8)
  - Calculus ureteric [None]
  - Red blood cells urine positive [None]
  - Hydronephrosis [None]
  - Crystal urine present [None]
  - Blood creatinine increased [None]
  - Proteinuria [None]
  - Urine output decreased [None]
  - Renal tubular necrosis [None]
